FAERS Safety Report 12166132 (Version 1)
Quarter: 2016Q1

REPORT INFORMATION
  Report Type: Other
  Country: IT (occurrence: IT)
  Receive Date: 20160309
  Receipt Date: 20160309
  Transmission Date: 20160526
  Serious: Yes (Hospitalization)
  Sender: FDA-Public Use
  Company Number: IT-MYLANLABS-2016M1009552

PATIENT

DRUGS (2)
  1. LEVOFLOXACIN. [Suspect]
     Active Substance: LEVOFLOXACIN
     Indication: BLADDER CATHETERISATION
     Dosage: 500 MG, QD
     Route: 048
     Dates: start: 20160213, end: 20160222
  2. AULIN [Concomitant]
     Active Substance: NIMESULIDE
     Indication: PRODUCT USED FOR UNKNOWN INDICATION
     Dosage: 200 MG, UNK
     Route: 048
     Dates: start: 20160213, end: 20160215

REACTIONS (2)
  - Tendon rupture [Recovered/Resolved with Sequelae]
  - Haematuria [Unknown]

NARRATIVE: CASE EVENT DATE: 20160216
